FAERS Safety Report 24265791 (Version 1)
Quarter: 2024Q3

REPORT INFORMATION
  Report Type: Spontaneous
  Country: DE (occurrence: DE)
  Receive Date: 20240830
  Receipt Date: 20240830
  Transmission Date: 20241017
  Serious: Yes (Other)
  Sender: JOHNSON AND JOHNSON
  Company Number: DE-JNJFOC-20240861563

PATIENT
  Age: 84 Year

DRUGS (5)
  1. SPRAVATO [Suspect]
     Active Substance: ESKETAMINE
     Indication: Product used for unknown indication
  2. SPRAVATO [Suspect]
     Active Substance: ESKETAMINE
     Dosage: 17TH AND 18TH TREATMENT
  3. SPRAVATO [Suspect]
     Active Substance: ESKETAMINE
  4. SPRAVATO [Suspect]
     Active Substance: ESKETAMINE
     Dosage: RECEIVED THE 84MG DOSE 8 TIMES
  5. SPRAVATO [Suspect]
     Active Substance: ESKETAMINE
     Dosage: 34TH TREATMENT

REACTIONS (5)
  - Arrhythmia [Recovered/Resolved]
  - Hyponatraemia [Unknown]
  - Hypertension [Unknown]
  - Depression [Unknown]
  - Off label use [Unknown]

NARRATIVE: CASE EVENT DATE: 20240801
